FAERS Safety Report 23568308 (Version 1)
Quarter: 2024Q1

REPORT INFORMATION
  Report Type: Spontaneous
  Country: US (occurrence: US)
  Receive Date: 20240227
  Receipt Date: 20240227
  Transmission Date: 20240409
  Serious: No
  Sender: FDA-Public Use
  Company Number: US-009507513-2402USA002689

PATIENT
  Age: 90 Year
  Sex: Male

DRUGS (5)
  1. BELSOMRA [Suspect]
     Active Substance: SUVOREXANT
     Indication: Sleep disorder
     Dosage: 15 MG / NIGHTLY
     Route: 048
     Dates: start: 20240205
  2. ATORVASTATIN [Concomitant]
     Active Substance: ATORVASTATIN
  3. SPIRONOLACTONE [Concomitant]
     Active Substance: SPIRONOLACTONE
  4. TORSEMIDE [Concomitant]
     Active Substance: TORSEMIDE
  5. ASPIRIN [Concomitant]
     Active Substance: ASPIRIN

REACTIONS (2)
  - Catathrenia [Unknown]
  - Abnormal sleep-related event [Unknown]

NARRATIVE: CASE EVENT DATE: 20240205
